FAERS Safety Report 8374970-3 (Version None)
Quarter: 2012Q2

REPORT INFORMATION
  Report Type: 
  Country: None (occurrence: None)
  Receive Date: 20120521
  Receipt Date: 20120515
  Transmission Date: 20120825
  Serious: Yes (Hospitalization)
  Sender: FDA-Public Use
  Company Number: BR-ROCHE-1069689

PATIENT
  Sex: Male
  Weight: 101 kg

DRUGS (1)
  1. MABTHERA [Suspect]
     Indication: MANTLE CELL LYMPHOMA
     Route: 042

REACTIONS (7)
  - PAIN [None]
  - BACK PAIN [None]
  - PYREXIA [None]
  - DIABETES MELLITUS [None]
  - PERIPHERAL COLDNESS [None]
  - BLOOD PRESSURE ABNORMAL [None]
  - FATIGUE [None]
